FAERS Safety Report 15565588 (Version 2)
Quarter: 2019Q1

REPORT INFORMATION
  Report Type: Report from Study
  Country: PL (occurrence: PL)
  Receive Date: 20181030
  Receipt Date: 20190204
  Transmission Date: 20190417
  Serious: Yes (Other)
  Sender: FDA-Public Use
  Company Number: PL-CHIESI USA, INC.-PL-2018CHI000434

PATIENT
  Age: 0 Day
  Sex: Male
  Weight: 1.25 kg

DRUGS (2)
  1. PEYONA [Concomitant]
     Indication: INFANTILE APNOEA
     Dosage: 25 MG, UNK
     Route: 042
     Dates: start: 20181010, end: 20181114
  2. CUROSURF [Suspect]
     Active Substance: PORACTANT ALFA
     Indication: NEONATAL RESPIRATORY DISTRESS SYNDROME
     Dosage: 3 ML, SINGLE
     Route: 039
     Dates: start: 20181010, end: 20181010

REACTIONS (1)
  - Neonatal hypoxia [Recovered/Resolved]

NARRATIVE: CASE EVENT DATE: 20181010
